FAERS Safety Report 23873536 (Version 2)
Quarter: 2024Q4

REPORT INFORMATION
  Report Type: Spontaneous
  Country: GR (occurrence: GR)
  Receive Date: 20240520
  Receipt Date: 20241210
  Transmission Date: 20250115
  Serious: Yes (Other)
  Sender: ROCHE
  Company Number: GR-ROCHE-3562727

PATIENT
  Age: 34 Year
  Sex: Female

DRUGS (5)
  1. RITUXIMAB [Suspect]
     Active Substance: RITUXIMAB
     Indication: Thrombotic microangiopathy
     Dosage: 3 DOSE EVERY WEEK.
     Route: 065
  2. PREDNISOLONE [Suspect]
     Active Substance: PREDNISOLONE
     Indication: Thrombotic microangiopathy
     Route: 065
  3. ASPIRIN [Concomitant]
     Active Substance: ASPIRIN
  4. FONDAPARINUX [Concomitant]
     Active Substance: FONDAPARINUX
  5. PROGESTERONE [Concomitant]
     Active Substance: PROGESTERONE

REACTIONS (2)
  - Ovarian hyperstimulation syndrome [Recovered/Resolved]
  - Maternal exposure during pregnancy [Unknown]
